FAERS Safety Report 8463328-4 (Version None)
Quarter: 2012Q2

REPORT INFORMATION
  Report Type: 
  Country: None (occurrence: None)
  Receive Date: 20120625
  Receipt Date: 20120608
  Transmission Date: 20120825
  Serious: Yes (Hospitalization, Other)
  Sender: FDA-Public Use
  Company Number: DK-PFIZER INC-2012139557

PATIENT
  Age: 44 Year
  Sex: Male

DRUGS (3)
  1. HJERTEMAGNYL ^DAK^ [Concomitant]
     Dosage: UNK
  2. ZYPREXA [Concomitant]
     Dosage: UNK
  3. ZIPRASIDONE HYDROCHLORIDE [Suspect]
     Dosage: 240 MG, PER DAY
     Dates: start: 20070101

REACTIONS (5)
  - MUSCLE SPASMS [None]
  - MUSCLE ATROPHY [None]
  - TOOTH LOSS [None]
  - WEIGHT INCREASED [None]
  - ANGINA PECTORIS [None]
